FAERS Safety Report 8227006-9 (Version None)
Quarter: 2012Q1

REPORT INFORMATION
  Report Type: 
  Country: None (occurrence: None)
  Receive Date: 20120322
  Receipt Date: 20120316
  Transmission Date: 20120608
  Serious: No
  Sender: FDA-Public Use
  Company Number: US-PFIZER INC-2012052306

PATIENT
  Sex: Female

DRUGS (8)
  1. CORDARONE [Suspect]
     Dosage: UNK
  2. LIPITOR [Suspect]
     Dosage: UNK
  3. ZOLOFT [Suspect]
     Dosage: UNK
  4. ALDACTONE [Suspect]
     Dosage: UNK
  5. XANAX [Suspect]
     Dosage: UNK
  6. GLUCOTROL XL [Suspect]
     Dosage: UNK
  7. CHANTIX [Suspect]
     Dosage: UNK
  8. ACCUPRIL [Concomitant]
     Dosage: UNK

REACTIONS (2)
  - DYSPNOEA [None]
  - NAUSEA [None]
